FAERS Safety Report 7656539-9 (Version None)
Quarter: 2011Q3

REPORT INFORMATION
  Report Type: 
  Country: None (occurrence: None)
  Receive Date: 20110804
  Receipt Date: 20101201
  Transmission Date: 20111222
  Serious: No
  Sender: FDA-Public Use
  Company Number: US-BAUSCH-2010BL006817

PATIENT
  Age: 81 Year
  Sex: Female

DRUGS (3)
  1. POTASSIUM [Concomitant]
     Route: 048
  2. OPCON-A [Suspect]
     Indication: EYE ALLERGY
     Route: 047
     Dates: start: 20101130, end: 20101130
  3. LOPRESSOR [Concomitant]
     Indication: HYPERTENSION

REACTIONS (2)
  - INCORRECT DOSE ADMINISTERED [None]
  - DIZZINESS [None]
